FAERS Safety Report 4685671-7 (Version None)
Quarter: 2005Q2

REPORT INFORMATION
  Report Type: 
  Country: None (occurrence: None)
  Receive Date: 20050608
  Receipt Date: 20050527
  Transmission Date: 20051028
  Serious: Yes (Life-Threatening, Hospitalization, Other)
  Sender: FDA-Public Use
  Company Number: 2002-11-2069

PATIENT
  Age: 43 Year
  Sex: Female
  Weight: 45 kg

DRUGS (3)
  1. VIRAFERONPEG [Suspect]
     Indication: HEPATITIS C
     Dosage: 80 MCG QW SUBCUTANEOUS
     Route: 058
     Dates: start: 20020201, end: 20020901
  2. REBETOL [Suspect]
     Indication: HEPATITIS C
     Dosage: 800 MG QD ORAL
     Route: 048
     Dates: start: 20020201, end: 20020901
  3. PARACETAMOL [Concomitant]

REACTIONS (12)
  - ALOPECIA [None]
  - CATHETER RELATED COMPLICATION [None]
  - CONSTIPATION [None]
  - CROHN'S DISEASE [None]
  - DISEASE RECURRENCE [None]
  - GENERAL PHYSICAL HEALTH DETERIORATION [None]
  - HYPOTHERMIA [None]
  - IATROGENIC INJURY [None]
  - LEUKOCYTOSIS [None]
  - PANCREATITIS [None]
  - PNEUMOTHORAX [None]
  - WEIGHT DECREASED [None]
